FAERS Safety Report 24338041 (Version 1)
Quarter: 2024Q3

REPORT INFORMATION
  Report Type: Spontaneous
  Country: KZ (occurrence: KZ)
  Receive Date: 20240919
  Receipt Date: 20240919
  Transmission Date: 20241017
  Serious: Yes (Other)
  Sender: RANBAXY
  Company Number: KZ-SUN PHARMACEUTICAL INDUSTRIES LTD-2024R1-465717

PATIENT
  Age: 24 Year
  Sex: Male

DRUGS (6)
  1. KETOROLAC [Suspect]
     Active Substance: KETOROLAC TROMETHAMINE
     Indication: Echinococciasis
     Dosage: UNK
     Route: 065
  2. CARBAMAZEPINE [Suspect]
     Active Substance: CARBAMAZEPINE
     Indication: Partial seizures
     Dosage: UNK
     Route: 065
  3. VITAMIN D [Concomitant]
     Active Substance: VITAMIN D NOS
     Indication: Product used for unknown indication
     Dosage: UNK
     Route: 065
  4. GLYCINE [Concomitant]
     Active Substance: GLYCINE
     Indication: Product used for unknown indication
     Dosage: UNK
     Route: 065
  5. citramone [Concomitant]
     Indication: Product used for unknown indication
     Dosage: UNK
     Route: 016
  6. METAMIZOLE SODIUM\TRIACETONAMINE TOSILATE [Concomitant]
     Active Substance: METAMIZOLE SODIUM\TRIACETONAMINE TOSILATE
     Indication: Product used for unknown indication
     Dosage: UNK
     Route: 065

REACTIONS (2)
  - Disease recurrence [Unknown]
  - Off label use [Unknown]
